FAERS Safety Report 17064450 (Version 1)
Quarter: 2019Q4

REPORT INFORMATION
  Report Type: Spontaneous
  Country: US (occurrence: US)
  Receive Date: 20191122
  Receipt Date: 20191122
  Transmission Date: 20200122
  Serious: No
  Sender: FDA-Public Use
  Company Number: US-PFIZER INC-2019502951

PATIENT
  Age: 68 Year
  Sex: Female

DRUGS (4)
  1. REVATIO [Suspect]
     Active Substance: SILDENAFIL CITRATE
     Indication: CARDIAC DISORDER
  2. REVATIO [Suspect]
     Active Substance: SILDENAFIL CITRATE
     Indication: PULMONARY HYPERTENSION
  3. TYVASO [Concomitant]
     Active Substance: TREPROSTINIL
     Indication: CARDIAC DISORDER
     Dosage: UNK
  4. REVATIO [Suspect]
     Active Substance: SILDENAFIL CITRATE
     Indication: HYPERTENSION
     Dosage: 80 MG, 3X/DAY (20 MG TABLET, TAKE 4 TABLETS (80MG TOTAL BY MOUTH 3 TIMES A DAY))
     Route: 048

REACTIONS (3)
  - Right ventricular dilatation [Unknown]
  - Condition aggravated [Unknown]
  - Overdose [Unknown]
